FAERS Safety Report 8443715 (Version 17)
Quarter: 2014Q4

REPORT INFORMATION
  Report Type: Report from Study
  Country: NL (occurrence: NL)
  Receive Date: 20120306
  Receipt Date: 20141126
  Transmission Date: 20150529
  Serious: Yes (Hospitalization, Other)
  Sender: FDA-Public Use
  Company Number: PHHO2012NL002291

PATIENT
  Age: 51 Year
  Sex: Male
  Weight: 78 kg

DRUGS (29)
  1. MYFORTIC [Suspect]
     Active Substance: MYCOPHENOLATE SODIUM
     Dosage: NO TREATMENT RECEIVED
     Route: 048
     Dates: start: 20120212, end: 20120221
  2. CALCIUM [Concomitant]
     Active Substance: CALCIUM
     Indication: MINERAL SUPPLEMENTATION
  3. VALCYTE [Concomitant]
     Active Substance: VALGANCICLOVIR HYDROCHLORIDE
     Indication: PROPHYLAXIS
     Dosage: 450 X1
     Dates: start: 20110714
  4. MONO-CEDOCARD [Concomitant]
     Indication: HYPERTENSION
     Dosage: 50 MG, QD
     Dates: start: 20120217
  5. PREDNISOLONE. [Suspect]
     Active Substance: PREDNISOLONE
     Dosage: 5 MG, BID
     Route: 048
  6. ETALPHA [Concomitant]
     Active Substance: ALFACALCIDOL
     Indication: BONE DISORDER
     Dosage: 0.25 UG, QD
     Dates: start: 20110722
  7. MYFORTIC [Suspect]
     Active Substance: MYCOPHENOLATE SODIUM
     Dosage: UNK
     Route: 048
     Dates: start: 20120222, end: 20120502
  8. MYFORTIC [Suspect]
     Active Substance: MYCOPHENOLATE SODIUM
     Dosage: 360 MG, BID
     Route: 048
  9. ENALAPRIL [Concomitant]
     Active Substance: ENALAPRIL
  10. CALCIUM [Concomitant]
     Active Substance: CALCIUM
     Indication: BONE DISORDER
     Dosage: UNK
     Dates: start: 20110810
  11. LIPITOR [Concomitant]
     Active Substance: ATORVASTATIN CALCIUM
     Indication: BLOOD CHOLESTEROL DECREASED
     Dosage: 10 MG, QD
     Dates: start: 20110713
  12. CALCICHEW [Concomitant]
     Active Substance: CALCIUM CARBONATE
     Dosage: 500 MG, QD
     Dates: start: 20110810
  13. NEXIUM [Concomitant]
     Active Substance: ESOMEPRAZOLE MAGNESIUM
     Indication: PROPHYLAXIS
     Dosage: 40 MG, QD
     Dates: start: 20110713
  14. CARDURA [Concomitant]
     Active Substance: DOXAZOSIN MESYLATE
     Indication: RESPIRATORY RATE INCREASED
     Dosage: 4 X1
     Dates: start: 20110818
  15. CALCICHEW [Concomitant]
     Active Substance: CALCIUM CARBONATE
     Indication: MINERAL SUPPLEMENTATION
     Dosage: 500 MG, QD
     Dates: start: 20110722
  16. NEORAL [Suspect]
     Active Substance: CYCLOSPORINE
     Dosage: NO TREATMENT RECEIVED
     Route: 048
     Dates: start: 20120212, end: 20120221
  17. NEORAL [Suspect]
     Active Substance: CYCLOSPORINE
     Dosage: UNK
     Route: 048
     Dates: start: 20120222, end: 20120502
  18. MYFORTIC [Suspect]
     Active Substance: MYCOPHENOLATE SODIUM
     Indication: RENAL TRANSPLANT
     Dosage: 360 MG, BID
     Route: 048
     Dates: start: 20110714, end: 20120211
  19. PREDNISOLONE. [Suspect]
     Active Substance: PREDNISOLONE
     Indication: RENAL TRANSPLANT
     Dosage: 10 MG, BID
     Route: 048
     Dates: start: 20110713, end: 20120211
  20. PREDNISOLONE. [Suspect]
     Active Substance: PREDNISOLONE
     Dosage: NO TREATMENT RECEIVED
     Route: 048
     Dates: start: 20120212, end: 20120221
  21. PREDNISOLONE. [Suspect]
     Active Substance: PREDNISOLONE
     Dosage: UNK
     Route: 048
     Dates: start: 20120222, end: 20120502
  22. LASIX [Concomitant]
     Active Substance: FUROSEMIDE
     Indication: DIURETIC THERAPY
     Dosage: 500 MG, QD
     Dates: start: 20110718
  23. AMLODIPINE [Concomitant]
     Active Substance: AMLODIPINE BESYLATE
     Indication: RESPIRATORY RATE INCREASED
     Dosage: 10 X1
     Dates: start: 20110810
  24. ETALPHA [Concomitant]
     Active Substance: ALFACALCIDOL
     Indication: OSTEOPOROSIS
     Dosage: 0.25 MG, QD
     Dates: start: 20110810
  25. LIPITOR [Concomitant]
     Active Substance: ATORVASTATIN CALCIUM
     Dosage: 10 MG, QD
     Dates: start: 20110714
  26. FUROSEMIDE. [Concomitant]
     Active Substance: FUROSEMIDE
     Indication: RESPIRATORY RATE INCREASED
     Dosage: 250 X1
     Dates: start: 20110810
  27. NEORAL [Suspect]
     Active Substance: CYCLOSPORINE
     Dosage: 50 MG, BID
     Route: 048
     Dates: start: 20120222
  28. LISINOPRIL. [Concomitant]
     Active Substance: LISINOPRIL
     Indication: HYPERTENSION
     Dosage: 5 MG, QD
     Dates: start: 20110106
  29. NEORAL [Suspect]
     Active Substance: CYCLOSPORINE
     Indication: RENAL TRANSPLANT
     Dosage: 175 MG, BID
     Route: 048
     Dates: start: 20110803, end: 20120211

REACTIONS (13)
  - Leukopenia [Recovered/Resolved]
  - Acute kidney injury [Not Recovered/Not Resolved]
  - Pneumocystis jirovecii pneumonia [Recovered/Resolved]
  - Pyelonephritis [Recovered/Resolved]
  - Thrombocytopenia [Recovered/Resolved]
  - Hydronephrosis [Recovered/Resolved with Sequelae]
  - Orthostatic hypotension [Recovered/Resolved]
  - Escherichia urinary tract infection [Not Recovered/Not Resolved]
  - Oedema peripheral [Recovered/Resolved]
  - Angina pectoris [Recovered/Resolved]
  - Urethral stenosis [Recovered/Resolved]
  - Diabetes mellitus inadequate control [Recovered/Resolved]
  - Confusional state [Recovered/Resolved]

NARRATIVE: CASE EVENT DATE: 20120106
